FAERS Safety Report 8205785-4 (Version None)
Quarter: 2012Q1

REPORT INFORMATION
  Report Type: 
  Country: None (occurrence: None)
  Receive Date: 20120313
  Receipt Date: 20120307
  Transmission Date: 20120608
  Serious: Yes (Death, Hospitalization, Other)
  Sender: FDA-Public Use
  Company Number: US-PFIZER INC-2012061632

PATIENT
  Sex: Male
  Weight: 86.168 kg

DRUGS (2)
  1. RAPAMUNE [Suspect]
     Dosage: 0.5 MG, 1X/DAY
     Route: 048
     Dates: start: 20120129
  2. RAPAMUNE [Suspect]
     Indication: PROPHYLAXIS AGAINST TRANSPLANT REJECTION
     Dosage: 1 MG, 1X/DAY
     Route: 048
     Dates: start: 20111001, end: 20120129

REACTIONS (3)
  - CARDIAC ARREST [None]
  - RENAL FAILURE [None]
  - ARTERIOSCLEROSIS [None]
